FAERS Safety Report 16872530 (Version 1)
Quarter: 2019Q4

REPORT INFORMATION
  Report Type: Report from Study
  Country: US (occurrence: US)
  Receive Date: 20191001
  Receipt Date: 20191001
  Transmission Date: 20200122
  Serious: Yes (Other)
  Sender: FDA-Public Use
  Company Number: US-GILEAD-2019-0430948

PATIENT
  Sex: Female

DRUGS (1)
  1. SOFOSBUVIR W/VELPATASVIR [Suspect]
     Active Substance: SOFOSBUVIR\VELPATASVIR
     Indication: HEPATITIS C
     Dosage: 1 DOSAGE FORM, QD
     Route: 065
     Dates: start: 201909

REACTIONS (7)
  - Epistaxis [Unknown]
  - Eye haemorrhage [Not Recovered/Not Resolved]
  - Headache [Unknown]
  - Eye inflammation [Not Recovered/Not Resolved]
  - Pain [Unknown]
  - Nausea [Unknown]
  - Fatigue [Unknown]
